FAERS Safety Report 10266606 (Version 2)
Quarter: 2014Q2

REPORT INFORMATION
  Report Type: Report from Study
  Country: DE (occurrence: DE)
  Receive Date: 20140629
  Receipt Date: 20140629
  Transmission Date: 20141212
  Serious: Yes (Death, Hospitalization)
  Sender: FDA-Public Use
  Company Number: PHHO2014DE008366

PATIENT
  Sex: 0

DRUGS (4)
  1. BLINDED ACZ885 [Suspect]
     Indication: CARDIOVASCULAR EVENT PROPHYLAXIS
     Dosage: CODE NOT BROKEN
     Route: 058
     Dates: start: 20130613
  2. BLINDED NO TREATMENT RECEIVED [Suspect]
     Indication: CARDIOVASCULAR EVENT PROPHYLAXIS
     Dosage: CODE NOT BROKEN
     Route: 058
     Dates: start: 20130613
  3. BLINDED PLACEBO [Suspect]
     Indication: CARDIOVASCULAR EVENT PROPHYLAXIS
     Dosage: CODE NOT BROKEN
     Route: 058
     Dates: start: 20130613
  4. AVALOX [Concomitant]
     Indication: BRONCHITIS
     Dosage: 400 MG, 1-0-0
     Dates: start: 20140522, end: 20140529

REACTIONS (4)
  - Pneumonia [Fatal]
  - Pulmonary oedema [Fatal]
  - Pulmonary embolism [Fatal]
  - Cardiogenic shock [Fatal]
